FAERS Safety Report 6537547-8 (Version None)
Quarter: 2010Q1

REPORT INFORMATION
  Report Type: 
  Country: None (occurrence: None)
  Receive Date: 20100114
  Receipt Date: 20100112
  Transmission Date: 20100710
  Serious: Yes (Other)
  Sender: FDA-Public Use
  Company Number: FR-SANOFI-AVENTIS-2010SA001643

PATIENT
  Age: 67 Year
  Sex: Male

DRUGS (16)
  1. RIFADIN [Suspect]
     Route: 048
     Dates: start: 20091104, end: 20091114
  2. RIMIFON [Suspect]
     Route: 048
     Dates: start: 20091104, end: 20091113
  3. SOLUPRED [Concomitant]
     Indication: DRUG USE FOR UNKNOWN INDICATION
  4. CELLCEPT [Concomitant]
     Indication: DRUG USE FOR UNKNOWN INDICATION
  5. RAPAMUNE [Concomitant]
     Indication: DRUG USE FOR UNKNOWN INDICATION
  6. SECTRAL [Concomitant]
     Indication: DRUG USE FOR UNKNOWN INDICATION
  7. SIMVASTATIN [Concomitant]
     Indication: DRUG USE FOR UNKNOWN INDICATION
  8. KARDEGIC [Concomitant]
     Indication: DRUG USE FOR UNKNOWN INDICATION
  9. PREVISCAN [Concomitant]
     Indication: THROMBOSIS PROPHYLAXIS
  10. TAREG [Concomitant]
     Indication: DRUG USE FOR UNKNOWN INDICATION
  11. LASILIX [Concomitant]
     Indication: DRUG USE FOR UNKNOWN INDICATION
  12. FORADIL [Concomitant]
     Indication: DRUG USE FOR UNKNOWN INDICATION
  13. BUDESONIDE [Concomitant]
     Indication: DRUG USE FOR UNKNOWN INDICATION
  14. TIOTROPIUM BROMIDE [Concomitant]
     Indication: DRUG USE FOR UNKNOWN INDICATION
  15. AERIUS [Concomitant]
     Indication: DRUG USE FOR UNKNOWN INDICATION
  16. ETHAMBUTOL HYDROCHLORIDE [Concomitant]
     Dates: start: 20091104, end: 20091114

REACTIONS (2)
  - CHOLESTASIS [None]
  - CYTOLYTIC HEPATITIS [None]
